FAERS Safety Report 6498154-9 (Version None)
Quarter: 2009Q4

REPORT INFORMATION
  Report Type: 
  Country: None (occurrence: None)
  Receive Date: 20091215
  Receipt Date: 20091209
  Transmission Date: 20100525
  Serious: Yes (Hospitalization, Other)
  Sender: FDA-Public Use
  Company Number: US-BAXTER-2009BH018556

PATIENT
  Age: 76 Year
  Sex: Male

DRUGS (1)
  1. DIANEAL [Suspect]
     Indication: PERITONEAL DIALYSIS
     Dosage: DOSE UNIT:
     Route: 033
     Dates: start: 20090301

REACTIONS (3)
  - CARDIAC FAILURE CONGESTIVE [None]
  - PERITONEAL DIALYSIS COMPLICATION [None]
  - PERITONITIS [None]
